FAERS Safety Report 17921101 (Version 2)
Quarter: 2020Q2

REPORT INFORMATION
  Report Type: Spontaneous
  Country: BE (occurrence: BE)
  Receive Date: 20200622
  Receipt Date: 20200623
  Transmission Date: 20200714
  Serious: Yes (Hospitalization, Disabling)
  Sender: FDA-Public Use
  Company Number: BE-ROCHE-2626758

PATIENT
  Sex: Female

DRUGS (9)
  1. ALECENSA [Suspect]
     Active Substance: ALECTINIB HYDROCHLORIDE
     Indication: NON-SMALL CELL LUNG CANCER
     Route: 048
     Dates: start: 20200415, end: 20200422
  2. PANTOMED [PANTOPRAZOLE SODIUM SESQUIHYDRATE] [Concomitant]
     Active Substance: PANTOPRAZOLE SODIUM
  3. LENDORMIN [Concomitant]
     Active Substance: BROTIZOLAM
  4. THYROXINE [Concomitant]
     Active Substance: LEVOTHYROXINE
  5. MEDROL [Concomitant]
     Active Substance: METHYLPREDNISOLONE
  6. KEPPRA [Concomitant]
     Active Substance: LEVETIRACETAM
  7. ALECENSA [Suspect]
     Active Substance: ALECTINIB HYDROCHLORIDE
     Route: 048
  8. D-CURE [Concomitant]
     Active Substance: CHOLECALCIFEROL
  9. XGEVA [Concomitant]
     Active Substance: DENOSUMAB

REACTIONS (3)
  - Papilloedema [Recovering/Resolving]
  - Rash [Recovered/Resolved with Sequelae]
  - Nausea [Recovering/Resolving]
